FAERS Safety Report 7302175-3 (Version None)
Quarter: 2011Q1

REPORT INFORMATION
  Report Type: 
  Country: None (occurrence: None)
  Receive Date: 20110218
  Receipt Date: 20110207
  Transmission Date: 20110831
  Serious: Yes (Other)
  Sender: FDA-Public Use
  Company Number: PHHY2011AU10295

PATIENT
  Age: 26 Year
  Sex: Male

DRUGS (3)
  1. DEXAMETHASONE [Suspect]
     Dosage: UNK
  2. MYCOPHENOLATE MOFETIL [Suspect]
     Indication: IMMUNOSUPPRESSION
  3. TACROLIMUS [Suspect]

REACTIONS (8)
  - STATUS EPILEPTICUS [None]
  - POSTERIOR REVERSIBLE ENCEPHALOPATHY SYNDROME [None]
  - MYDRIASIS [None]
  - GRAND MAL CONVULSION [None]
  - HYPERTENSION [None]
  - AGITATION [None]
  - DRUG LEVEL INCREASED [None]
  - HYPERAESTHESIA [None]
